FAERS Safety Report 13679221 (Version 2)
Quarter: 2017Q4

REPORT INFORMATION
  Report Type: Spontaneous
  Country: US (occurrence: US)
  Receive Date: 20170622
  Receipt Date: 20171110
  Transmission Date: 20180320
  Serious: No
  Sender: FDA-Public Use
  Company Number: US-BAUSCH-BL-2017-011078

PATIENT
  Age: 69 Year
  Sex: Male
  Weight: 70.37 kg

DRUGS (6)
  1. PROVENGE [Suspect]
     Active Substance: SIPULEUCEL-T
     Indication: PROSTATE CANCER
     Dosage: SINGLE
     Route: 042
     Dates: start: 20170413, end: 20170413
  2. METFORMIN [Concomitant]
     Active Substance: METFORMIN HYDROCHLORIDE
     Indication: PRODUCT USED FOR UNKNOWN INDICATION
  3. OMEGA 3 [Concomitant]
     Active Substance: OMEGA-3 FATTY ACIDS
     Indication: PRODUCT USED FOR UNKNOWN INDICATION
  4. PROVENGE [Suspect]
     Active Substance: SIPULEUCEL-T
     Dosage: SINGLE
     Route: 042
     Dates: start: 20170427, end: 20170427
  5. PROVENGE [Suspect]
     Active Substance: SIPULEUCEL-T
     Dosage: SINGLE
     Route: 042
     Dates: start: 20170420, end: 20170420
  6. ENZALUTAMIDE [Concomitant]
     Active Substance: ENZALUTAMIDE
     Indication: PRODUCT USED FOR UNKNOWN INDICATION
     Dates: start: 201701

REACTIONS (2)
  - Pruritus [Recovered/Resolved]
  - Rash [Recovered/Resolved]

NARRATIVE: CASE EVENT DATE: 20170422
